FAERS Safety Report 11518099 (Version 1)
Quarter: 2015Q3

REPORT INFORMATION
  Report Type: Spontaneous
  Country: US (occurrence: US)
  Receive Date: 20150917
  Receipt Date: 20150917
  Transmission Date: 20151125
  Serious: No
  Sender: FDA-Public Use
  Company Number: US-GALDERMA-US15005588

PATIENT
  Age: 30 Year
  Sex: Female

DRUGS (4)
  1. SOOLANTRA [Suspect]
     Active Substance: IVERMECTIN
     Indication: ROSACEA
     Dosage: 1%
     Route: 061
     Dates: start: 20150624, end: 20150627
  2. UNKNOWN CLEANSER [Concomitant]
     Route: 061
  3. UNKNOWN ZINC OXIDE BASED SUNSCREEN [Concomitant]
     Route: 061
  4. MIRVASO [Suspect]
     Active Substance: BRIMONIDINE TARTRATE
     Indication: ROSACEA
     Dosage: 0.33%
     Route: 061
     Dates: start: 20150624, end: 20150630

REACTIONS (6)
  - Rash [Recovered/Resolved]
  - Dry skin [Recovered/Resolved]
  - Erythema [Recovering/Resolving]
  - Skin burning sensation [Recovered/Resolved]
  - Skin exfoliation [Recovered/Resolved]
  - Dermatitis contact [Recovered/Resolved]

NARRATIVE: CASE EVENT DATE: 20150624
